FAERS Safety Report 22029844 (Version 2)
Quarter: 2023Q1

REPORT INFORMATION
  Report Type: Spontaneous
  Country: AU (occurrence: AU)
  Receive Date: 20230223
  Receipt Date: 20230321
  Transmission Date: 20230417
  Serious: No
  Sender: FDA-Public Use
  Company Number: AU-PFIZER INC-202300067272

PATIENT
  Age: 52 Year
  Sex: Male

DRUGS (1)
  1. ENBREL [Suspect]
     Active Substance: ETANERCEPT
     Dosage: UNK

REACTIONS (2)
  - Device malfunction [Unknown]
  - Drug dose omission by device [Unknown]
